FAERS Safety Report 20803114 (Version 1)
Quarter: 2022Q2

REPORT INFORMATION
  Report Type: Spontaneous
  Country: US (occurrence: None)
  Receive Date: 20220509
  Receipt Date: 20220509
  Transmission Date: 20220720
  Serious: No
  Sender: FDA-Public Use
  Company Number: 2022A150759

PATIENT
  Sex: Male
  Weight: 81.6 kg

DRUGS (4)
  1. FARXIGA [Suspect]
     Active Substance: DAPAGLIFLOZIN PROPANEDIOL
     Indication: Cardiac disorder
     Route: 048
  2. FARXIGA [Suspect]
     Active Substance: DAPAGLIFLOZIN PROPANEDIOL
     Indication: Cardiac disorder
     Route: 048
  3. TORSEMIDE [Concomitant]
     Active Substance: TORSEMIDE
  4. UNSPECIFIED INGREDIENT [Concomitant]
     Active Substance: UNSPECIFIED INGREDIENT
     Dosage: TAKE 9 PILLS IN THE MORNING.

REACTIONS (3)
  - Dizziness [Recovered/Resolved]
  - Dehydration [Unknown]
  - Visual impairment [Unknown]
